FAERS Safety Report 11349349 (Version 1)
Quarter: 2015Q3

REPORT INFORMATION
  Report Type: Spontaneous
  Country: GB (occurrence: None)
  Receive Date: 20150805
  Receipt Date: 20150805
  Transmission Date: 20151125
  Serious: Yes (Life-Threatening, Other)
  Sender: FDA-Public Use
  Company Number: NL01PV15_39399

PATIENT
  Age: 69 Year
  Sex: Male
  Weight: 80 kg

DRUGS (2)
  1. UNKNOWN (TAMSULOSIN) UNKNOWN [Suspect]
     Active Substance: TAMSULOSIN
     Indication: URINE FLOW DECREASED
     Route: 048
     Dates: start: 20150427, end: 20150503
  2. OMEPRAZOLE. [Concomitant]
     Active Substance: OMEPRAZOLE

REACTIONS (3)
  - Fatigue [None]
  - Atrial fibrillation [None]
  - Palpitations [None]

NARRATIVE: CASE EVENT DATE: 20150429
